FAERS Safety Report 8993393 (Version 2)
Quarter: 2013Q2

REPORT INFORMATION
  Report Type: Spontaneous
  Country: JP (occurrence: JP)
  Receive Date: 20130102
  Receipt Date: 20130425
  Transmission Date: 20140414
  Serious: Yes (Life-Threatening, Hospitalization, Disabling, Other)
  Sender: FDA-Public Use
  Company Number: JP-PFIZER INC-2012292809

PATIENT
  Age: 68 Year
  Sex: Female
  Weight: 39 kg

DRUGS (5)
  1. EPIRUBICIN HCL [Suspect]
     Indication: BREAST CANCER
     Dosage: 100 MG/M2, 1X/DAY
     Route: 041
     Dates: start: 20101213, end: 20110215
  2. FLUOROURACIL [Suspect]
     Indication: BREAST CANCER
     Dosage: 500 MG/M2, 1X/DAY
     Route: 041
     Dates: start: 20101213, end: 20110215
  3. PACLITAXEL [Suspect]
     Indication: BREAST CANCER
     Dosage: 80 MG/M2, 1X/DAY
     Route: 041
     Dates: start: 20110404, end: 20110411
  4. CYCLOPHOSPHAMIDE [Suspect]
     Indication: BREAST CANCER
     Dosage: 500 MG/M2, 1X/DAY
     Route: 041
     Dates: start: 20101213, end: 20110215
  5. TRASTUZUMAB [Suspect]
     Indication: BREAST CANCER
     Dosage: 4 MG/KG, 1X/DAY
     Route: 041
     Dates: start: 20110404

REACTIONS (2)
  - Spondylitis [Recovered/Resolved]
  - Aortic aneurysm [Recovered/Resolved]
